FAERS Safety Report 21591767 (Version 8)
Quarter: 2023Q1

REPORT INFORMATION
  Report Type: Report from Study
  Country: US (occurrence: US)
  Receive Date: 20221114
  Receipt Date: 20230129
  Transmission Date: 20230417
  Serious: No
  Sender: FDA-Public Use
  Company Number: US-ABBVIE-22K-163-4516737-00

PATIENT
  Sex: Female

DRUGS (6)
  1. IMBRUVICA [Suspect]
     Active Substance: IBRUTINIB
     Indication: Diffuse large B-cell lymphoma
     Route: 048
     Dates: start: 202110
  2. IMBRUVICA [Suspect]
     Active Substance: IBRUTINIB
     Indication: Diffuse large B-cell lymphoma
     Dosage: TIME INTERVAL: 0.33333333 DAYS: FORM STRENGTH : 140 MILLIGRAM
     Route: 048
     Dates: start: 20220223
  3. IMBRUVICA [Suspect]
     Active Substance: IBRUTINIB
     Indication: Diffuse large B-cell lymphoma
     Dosage: TIME INTERVAL: 0.33333333 DAYS: FORM STRENGTH : 140 MILLIGRAM
     Route: 048
     Dates: start: 20220221
  4. IMBRUVICA [Suspect]
     Active Substance: IBRUTINIB
     Indication: Diffuse large B-cell lymphoma
     Route: 048
  5. ACYCLOVIR [Suspect]
     Active Substance: ACYCLOVIR
     Indication: Product used for unknown indication
     Dosage: LAST ADMIN DATE 2022
     Route: 065
  6. RITUXAN [Suspect]
     Active Substance: RITUXIMAB
     Indication: Product used for unknown indication
     Route: 065

REACTIONS (29)
  - Central nervous system lesion [Recovered/Resolved]
  - Gilbert^s syndrome [Unknown]
  - Petechiae [Unknown]
  - Palpitations [Unknown]
  - Pharyngeal disorder [Unknown]
  - Neuropathy peripheral [Unknown]
  - Oral pain [Unknown]
  - Insomnia [Unknown]
  - Pruritus [Unknown]
  - Asthenia [Unknown]
  - Illness [Unknown]
  - Platelet count decreased [Unknown]
  - Erythema [Unknown]
  - Groin pain [Unknown]
  - Hypoaesthesia [Unknown]
  - Oropharyngeal pain [Unknown]
  - Constipation [Recovered/Resolved]
  - Hyperthyroidism [Unknown]
  - Pain in extremity [Unknown]
  - Fall [Unknown]
  - Drug intolerance [Unknown]
  - Feeling cold [Unknown]
  - Fatigue [Unknown]
  - Stomatitis [Unknown]
  - Dental restoration failure [Unknown]
  - Back pain [Unknown]
  - Dizziness [Unknown]
  - Contusion [Unknown]
  - Head injury [Unknown]
